FAERS Safety Report 6107496-8 (Version None)
Quarter: 2009Q1

REPORT INFORMATION
  Report Type: 
  Country: None (occurrence: None)
  Receive Date: 20090309
  Receipt Date: 20090225
  Transmission Date: 20090719
  Serious: Yes (Hospitalization)
  Sender: FDA-Public Use
  Company Number: DE-PFIZER INC-2009171565

PATIENT

DRUGS (8)
  1. AMLODIPINE BESYLATE [Interacting]
     Indication: HYPERTENSION
     Dosage: 5 MG, 1X/DAY
     Route: 048
     Dates: start: 20070101, end: 20080727
  2. ENALAPRIL MALEATE [Suspect]
     Indication: HYPERTENSION
     Dosage: 5 MG, 2X/DAY
     Route: 048
     Dates: start: 20080401, end: 20080729
  3. XIPAMIDE [Suspect]
     Indication: CARDIAC FAILURE
     Dosage: 20 MG, 1X/DAY
     Route: 048
     Dates: start: 20080401, end: 20080727
  4. BISOPROLOL [Interacting]
     Indication: HYPERTENSION
     Dosage: 2.5 MG, 1X/DAY
     Route: 048
     Dates: start: 20070101, end: 20080727
  5. TAVANIC [Suspect]
     Indication: URINARY TRACT INFECTION
     Dosage: 250 MG, 1X/DAY
     Route: 048
     Dates: start: 20080721, end: 20080803
  6. ASPIRIN [Concomitant]
     Indication: CORONARY ARTERY DISEASE
     Dosage: 300 MG, 1X/DAY
     Route: 048
     Dates: start: 20070101
  7. CETIRIZINE [Concomitant]
     Dosage: 10 MG, 1X/DAY
     Route: 048
     Dates: end: 20080727
  8. NOVALGIN [Concomitant]
     Indication: PAIN
     Dosage: 30 GTT, 3X/DAY
     Route: 048
     Dates: start: 20080401

REACTIONS (2)
  - DRUG INTERACTION [None]
  - RENAL FAILURE ACUTE [None]
